FAERS Safety Report 10888817 (Version 4)
Quarter: 2015Q2

REPORT INFORMATION
  Report Type: Spontaneous
  Country: US (occurrence: US)
  Receive Date: 20150305
  Receipt Date: 20150608
  Transmission Date: 20150821
  Serious: No
  Sender: FDA-Public Use
  Company Number: US-ASTRAZENECA-2015SE20015

PATIENT
  Age: 88 Year
  Sex: Female
  Weight: 73.9 kg

DRUGS (3)
  1. NEXIUM 24HR [Suspect]
     Active Substance: ESOMEPRAZOLE MAGNESIUM
     Indication: GASTROOESOPHAGEAL REFLUX DISEASE
     Route: 048
     Dates: start: 201502, end: 201502
  2. PANTOPRAZOLE [Concomitant]
     Active Substance: PANTOPRAZOLE SODIUM
  3. TOPROL XL [Concomitant]
     Active Substance: METOPROLOL SUCCINATE

REACTIONS (7)
  - Abdominal pain upper [Unknown]
  - Dyspepsia [Recovering/Resolving]
  - Functional gastrointestinal disorder [Unknown]
  - Drug ineffective for unapproved indication [Unknown]
  - Gastrooesophageal reflux disease [Unknown]
  - Intentional product misuse [Unknown]
  - Drug intolerance [Unknown]

NARRATIVE: CASE EVENT DATE: 201502
